FAERS Safety Report 5275697-7 (Version None)
Quarter: 2007Q1

REPORT INFORMATION
  Report Type: 
  Country: None (occurrence: None)
  Receive Date: 20061213
  Receipt Date: 20060515
  Transmission Date: 20070707
  Serious: Yes (Hospitalization)
  Sender: FDA-Public Use
  Company Number: 2006UW09594

PATIENT
  Age: 62 Year
  Sex: Female

DRUGS (1)
  1. SEROQUEL [Suspect]
     Dosage: 25 MG; PO
     Route: 048

REACTIONS (2)
  - CHEST PAIN [None]
  - HEART RATE INCREASED [None]
